FAERS Safety Report 19486024 (Version 1)
Quarter: 2021Q3

REPORT INFORMATION
  Report Type: Spontaneous
  Country: US (occurrence: US)
  Receive Date: 20210702
  Receipt Date: 20210702
  Transmission Date: 20211014
  Serious: Yes (Life-Threatening, Hospitalization, Other)
  Sender: FDA-Public Use
  Company Number: US-DRREDDYS-SPO/USA/21/0137198

PATIENT
  Age: 48 Year
  Sex: Male

DRUGS (6)
  1. HEPARIN SODIUM. [Suspect]
     Active Substance: HEPARIN SODIUM
     Route: 042
  2. QUETIAPINE FUMARATE TABLETS [Concomitant]
     Active Substance: QUETIAPINE FUMARATE
     Indication: DRUG WITHDRAWAL SYNDROME
  3. HEPARIN SODIUM. [Suspect]
     Active Substance: HEPARIN SODIUM
     Indication: PRODUCT USED FOR UNKNOWN INDICATION
     Dosage: INCREASED
     Route: 042
  4. QUETIAPINE FUMARATE TABLETS [Concomitant]
     Active Substance: QUETIAPINE FUMARATE
     Indication: DELIRIUM
  5. METHADONE [Concomitant]
     Active Substance: METHADONE HYDROCHLORIDE
     Indication: DRUG WITHDRAWAL SYNDROME
  6. METHADONE [Concomitant]
     Active Substance: METHADONE HYDROCHLORIDE
     Indication: DELIRIUM

REACTIONS (2)
  - Haematemesis [Unknown]
  - Heparin resistance [Unknown]
